FAERS Safety Report 23913012 (Version 1)
Quarter: 2024Q2

REPORT INFORMATION
  Report Type: Spontaneous
  Country: US (occurrence: US)
  Receive Date: 20240529
  Receipt Date: 20240529
  Transmission Date: 20240716
  Serious: Yes (Hospitalization)
  Sender: FDA-Public Use
  Company Number: US-STRIDES ARCOLAB LIMITED-2024SP002685

PATIENT
  Age: 61 Year
  Sex: Female

DRUGS (8)
  1. LOPERAMIDE HYDROCHLORIDE [Suspect]
     Active Substance: LOPERAMIDE HYDROCHLORIDE
     Indication: Apoptotic colonopathy
     Dosage: UNK
     Route: 065
  2. DIPHENOXYLATE [Suspect]
     Active Substance: DIPHENOXYLATE
     Indication: Apoptotic colonopathy
     Dosage: UNK
     Route: 065
  3. OCTREOTIDE [Suspect]
     Active Substance: OCTREOTIDE\OCTREOTIDE ACETATE
     Indication: Apoptotic colonopathy
     Dosage: UNK
     Route: 065
  4. CHOLESTYRAMINE [Suspect]
     Active Substance: CHOLESTYRAMINE
     Indication: Apoptotic colonopathy
     Dosage: UNK
     Route: 065
  5. OPIUM [Suspect]
     Active Substance: MORPHINE\OPIUM
     Indication: Apoptotic colonopathy
     Dosage: UNK, (TINCTURE OF OPIUM)
     Route: 065
  6. RITUXIMAB [Concomitant]
     Active Substance: RITUXIMAB
     Indication: Marginal zone lymphoma
     Dosage: UNK
     Route: 065
  7. OBINUTUZUMAB [Concomitant]
     Active Substance: OBINUTUZUMAB
     Indication: Marginal zone lymphoma
     Dosage: UNK
     Route: 065
  8. BENDAMUSTINE [Concomitant]
     Active Substance: BENDAMUSTINE
     Indication: Marginal zone lymphoma
     Dosage: UNK
     Route: 065

REACTIONS (1)
  - Drug ineffective for unapproved indication [Unknown]
